FAERS Safety Report 15113995 (Version 2)
Quarter: 2018Q4

REPORT INFORMATION
  Report Type: Report from Study
  Country: IT (occurrence: IT)
  Receive Date: 20180706
  Receipt Date: 20181023
  Transmission Date: 20190204
  Serious: Yes (Other)
  Sender: FDA-Public Use
  Company Number: IT-TEVA-2018-IT-921228

PATIENT
  Age: 78 Year
  Sex: Female

DRUGS (8)
  1. FOSIPRES 10 MG COMPRESSE [Concomitant]
     Route: 065
  2. PROVISACOR 5 MG COMPRESSE RIVESTITE CON FILM [Concomitant]
     Route: 065
  3. ALDACTONE 25 MG CAPSULE RIGIDE [Concomitant]
     Dosage: CAPSULE RIGID
     Route: 065
  4. TRAMADOL HYDROCHLORIDE. [Suspect]
     Active Substance: TRAMADOL HYDROCHLORIDE
     Route: 048
     Dates: start: 20180508, end: 20180508
  5. GABAPENTIN. [Concomitant]
     Active Substance: GABAPENTIN
     Route: 065
  6. LASIX [Concomitant]
     Active Substance: FUROSEMIDE
     Route: 065
  7. DILATREND 6,25 MG COMPRESSE [Concomitant]
     Dosage: 6,25 MG
     Route: 065
  8. ZOLOFT [Concomitant]
     Active Substance: SERTRALINE HYDROCHLORIDE
     Route: 065

REACTIONS (2)
  - Bradykinesia [Recovering/Resolving]
  - Balance disorder [Recovering/Resolving]

NARRATIVE: CASE EVENT DATE: 20180514
